FAERS Safety Report 8426895-2 (Version None)
Quarter: 2012Q2

REPORT INFORMATION
  Report Type: 
  Country: None (occurrence: None)
  Receive Date: 20120611
  Receipt Date: 20120606
  Transmission Date: 20120825
  Serious: No
  Sender: FDA-Public Use
  Company Number: US-PFIZER INC-2012136579

PATIENT
  Sex: Female
  Weight: 80.726 kg

DRUGS (2)
  1. LYRICA [Suspect]
     Indication: VULVOVAGINAL PAIN
     Dosage: 50 MG, 1X/DAY
     Route: 048
     Dates: start: 20120604
  2. ENALAPRIL MALEATE [Interacting]
     Indication: HYPERTENSION
     Dosage: UNK

REACTIONS (7)
  - BURNING SENSATION [None]
  - FEELING ABNORMAL [None]
  - SOMNOLENCE [None]
  - PALPITATIONS [None]
  - PARAESTHESIA [None]
  - DRUG INTERACTION [None]
  - SEDATION [None]
